FAERS Safety Report 21223926 (Version 1)
Quarter: 2022Q3

REPORT INFORMATION
  Report Type: Spontaneous
  Country: JP (occurrence: JP)
  Receive Date: 20220817
  Receipt Date: 20220817
  Transmission Date: 20221027
  Serious: Yes (Other)
  Sender: FDA-Public Use
  Company Number: JP-ferring-EVA202200939FERRINGPH

PATIENT

DRUGS (1)
  1. DINOPROSTONE [Suspect]
     Active Substance: DINOPROSTONE
     Indication: Product used for unknown indication
     Route: 065

REACTIONS (2)
  - Amniotic cavity infection [Unknown]
  - Obstructed labour [Unknown]
